FAERS Safety Report 5588021-7 (Version None)
Quarter: 2008Q1

REPORT INFORMATION
  Report Type: 
  Country: None (occurrence: None)
  Receive Date: 20080111
  Receipt Date: 20080107
  Transmission Date: 20080703
  Serious: Yes (Hospitalization)
  Sender: FDA-Public Use
  Company Number: DE-WYE-G00823407

PATIENT
  Sex: Female
  Weight: 100 kg

DRUGS (3)
  1. TREVILOR RETARD [Suspect]
     Dosage: 40 CAPSULES (OVERDOSE AMOUNT 3000 MG) OVER 2 HOURS
     Route: 048
     Dates: start: 20071224, end: 20071224
  2. ETHANOL [Suspect]
     Dosage: UNKNOWN ALCOHOL AMOUNT (OVERDOSE AMOUNT UNKNOWN)
     Route: 048
     Dates: start: 20071224, end: 20071224
  3. PROMETHAZINE [Suspect]
     Dosage: 10 TABLETS (OVERDOSE AMOUNT 250 MG) OVER 2 HOURS
     Route: 048
     Dates: start: 20071224, end: 20071224

REACTIONS (4)
  - AGGRESSION [None]
  - COMA [None]
  - CONVULSION [None]
  - INTENTIONAL OVERDOSE [None]
